FAERS Safety Report 8621693-9 (Version None)
Quarter: 2012Q3

REPORT INFORMATION
  Report Type: 
  Country: None (occurrence: None)
  Receive Date: 20120821
  Receipt Date: 20120821
  Transmission Date: 20120928
  Serious: No
  Sender: FDA-Public Use
  Company Number: None

PATIENT
  Sex: Male
  Weight: 92.7 kg

DRUGS (1)
  1. PROMETHAZINE W/ CODEINE [Suspect]
     Indication: COUGH
     Dosage: 5 TO 10 ML Q4H PRN PO
     Route: 048
     Dates: start: 20120815

REACTIONS (2)
  - PRODUCT SUBSTITUTION ISSUE [None]
  - CHEST PAIN [None]
